FAERS Safety Report 25797592 (Version 1)
Quarter: 2025Q3

REPORT INFORMATION
  Report Type: Spontaneous
  Country: BA (occurrence: BA)
  Receive Date: 20250912
  Receipt Date: 20250912
  Transmission Date: 20251021
  Serious: Yes (Other)
  Sender: ELI LILLY AND COMPANY
  Company Number: BA-ELI_LILLY_AND_COMPANY-BA202509006640

PATIENT
  Age: 75 Year
  Sex: Male

DRUGS (1)
  1. ABEMACICLIB [Suspect]
     Active Substance: ABEMACICLIB
     Indication: Breast cancer metastatic
     Route: 065

REACTIONS (1)
  - Pulmonary embolism [Unknown]
